FAERS Safety Report 5307025-2 (Version None)
Quarter: 2007Q2

REPORT INFORMATION
  Report Type: 
  Country: None (occurrence: None)
  Receive Date: 20070420
  Receipt Date: 20070420
  Transmission Date: 20071010
  Serious: Yes (Other)
  Sender: FDA-Public Use
  Company Number: None

PATIENT
  Sex: Female
  Weight: 68.0396 kg

DRUGS (8)
  1. HYDROXYCHLOROQUINE SULFATE [Suspect]
     Indication: SYSTEMIC LUPUS ERYTHEMATOSUS
     Dosage: 200MG 2 PO 5 DAYS PER WEEK
     Route: 048
     Dates: start: 19800101
  2. LIPITOR [Concomitant]
  3. VITAMIN D (RX) [Concomitant]
  4. CALCIUM CHLORIDE [Concomitant]
  5. M.V.I. [Concomitant]
  6. ALDACTONE [Concomitant]
  7. GLUCOSONE [Concomitant]
  8. HYDROCHLOROTHIAZIDE [Concomitant]

REACTIONS (2)
  - SCOTOMA [None]
  - VISUAL FIELD DEFECT [None]
